FAERS Safety Report 4310562-0 (Version None)
Quarter: 2004Q1

REPORT INFORMATION
  Report Type: 
  Country: None (occurrence: None)
  Receive Date: 20040303
  Receipt Date: 20040219
  Transmission Date: 20041129
  Serious: Yes (Death)
  Sender: FDA-Public Use
  Company Number: GR-GLAXOSMITHKLINE-B0323996A

PATIENT
  Age: 67 Year
  Sex: Female

DRUGS (5)
  1. TIMENTIN [Suspect]
     Indication: SURGERY
     Dosage: 5.2G THREE TIMES PER DAY
     Route: 042
     Dates: start: 20040123, end: 20040124
  2. PANTOPRAZOLE [Suspect]
     Indication: PROPHYLAXIS
     Dosage: 40MG TWICE PER DAY
     Route: 042
     Dates: start: 20040123, end: 20040124
  3. BUPIVACAINE [Concomitant]
     Indication: ANALGESIC INTERVENTION SUPPORTIVE THERAPY
     Dosage: 12MG PER DAY
     Dates: start: 20040123
  4. DICLOFENAC SODIUM [Concomitant]
     Indication: ANALGESIC EFFECT
     Route: 030
     Dates: start: 20040123
  5. LONARID [Concomitant]
     Indication: ANALGESIC EFFECT
     Route: 048
     Dates: start: 20040123, end: 20040124

REACTIONS (1)
  - HEPATORENAL FAILURE [None]
